FAERS Safety Report 6287868-1 (Version None)
Quarter: 2009Q3

REPORT INFORMATION
  Report Type: 
  Country: None (occurrence: None)
  Receive Date: 20090729
  Receipt Date: 20090720
  Transmission Date: 20100115
  Serious: Yes (Other)
  Sender: FDA-Public Use
  Company Number: US-ELI_LILLY_AND_COMPANY-US200907004224

PATIENT
  Sex: Male
  Weight: 104.31 kg

DRUGS (3)
  1. BYETTA [Suspect]
     Indication: TYPE 2 DIABETES MELLITUS
     Dosage: 5 UG, UNK
     Route: 058
     Dates: start: 20090101, end: 20090101
  2. JANUVIA [Concomitant]
  3. METFORMIN [Concomitant]

REACTIONS (6)
  - DIZZINESS [None]
  - FALL [None]
  - HEART RATE INCREASED [None]
  - HYPOGLYCAEMIA [None]
  - MALAISE [None]
  - MOBILITY DECREASED [None]
